FAERS Safety Report 7280137-2 (Version None)
Quarter: 2011Q1

REPORT INFORMATION
  Report Type: 
  Country: None (occurrence: None)
  Receive Date: 20110208
  Receipt Date: 20110203
  Transmission Date: 20110831
  Serious: No
  Sender: FDA-Public Use
  Company Number: US-JNJFOC-20110201887

PATIENT
  Sex: Male
  Weight: 77.11 kg

DRUGS (3)
  1. DURAGESIC-50 [Suspect]
     Indication: PAIN MANAGEMENT
     Route: 062
  2. FENTANYL-100 [Suspect]
     Indication: PAIN MANAGEMENT
     Route: 062
  3. FENTANYL-100 [Suspect]
     Route: 062

REACTIONS (3)
  - THERAPEUTIC RESPONSE DECREASED [None]
  - INAPPROPRIATE SCHEDULE OF DRUG ADMINISTRATION [None]
  - DRUG INEFFECTIVE [None]
